FAERS Safety Report 24357954 (Version 1)
Quarter: 2024Q3

REPORT INFORMATION
  Report Type: Spontaneous
  Country: MY (occurrence: MY)
  Receive Date: 20240924
  Receipt Date: 20240924
  Transmission Date: 20241017
  Serious: Yes (Life-Threatening, Hospitalization, Other)
  Sender: GLAND PHARMA
  Company Number: MY-GLANDPHARMA-MY-2024GLNLIT00766

PATIENT
  Age: 67 Year
  Sex: Male

DRUGS (3)
  1. GEMCITABINE [Suspect]
     Active Substance: GEMCITABINE
     Indication: Pancreatic carcinoma
     Route: 065
  2. CISPLATIN [Suspect]
     Active Substance: CISPLATIN
     Indication: Pancreatic carcinoma
     Route: 065
  3. ATROPINE [Concomitant]
     Active Substance: ATROPINE
     Indication: Bradycardia
     Route: 042

REACTIONS (3)
  - Vibrio vulnificus infection [Recovering/Resolving]
  - Septic shock [Recovering/Resolving]
  - Product use in unapproved indication [Unknown]
